FAERS Safety Report 21147476 (Version 1)
Quarter: 2022Q3

REPORT INFORMATION
  Report Type: Spontaneous
  Country: US (occurrence: None)
  Receive Date: 20220728
  Receipt Date: 20220728
  Transmission Date: 20221027
  Serious: Yes (Other)
  Sender: FDA-Public Use
  Company Number: None

PATIENT
  Age: 67 Year
  Sex: Female
  Weight: 76.5 kg

DRUGS (4)
  1. TERBINAFINE HYDROCHLORIDE [Suspect]
     Active Substance: TERBINAFINE HYDROCHLORIDE
     Indication: Onychomycosis
     Dosage: OTHER QUANTITY : 1 TABLET(S);?FREQUENCY : DAILY;?
     Route: 048
     Dates: start: 20220614, end: 20220711
  2. atenolol25mg [Concomitant]
  3. rosuvastatin CALC [Concomitant]
  4. vit D3 5000u [Concomitant]

REACTIONS (3)
  - Ageusia [None]
  - Feeding disorder [None]
  - Nausea [None]

NARRATIVE: CASE EVENT DATE: 20220711
